FAERS Safety Report 5030190-1 (Version None)
Quarter: 2006Q2

REPORT INFORMATION
  Report Type: 
  Country: None (occurrence: None)
  Receive Date: 20060614
  Receipt Date: 20060601
  Transmission Date: 20061013
  Serious: Yes (Hospitalization)
  Sender: FDA-Public Use
  Company Number: HQWYE906605JUN06

PATIENT
  Age: 63 Year
  Sex: Female
  Weight: 38.36 kg

DRUGS (4)
  1. BLINDED THERAPY FOR BAZEDOXIFENE ACETATE / CONJUGATED ESTROGENS  (BLIN [Suspect]
     Indication: ATROPHIC VULVOVAGINITIS
     Dosage: 1 CAPSULE 1X PER 1 DAY, ORAL
     Route: 048
     Dates: start: 20060216, end: 20060515
  2. ATENOLOL [Concomitant]
  3. IBUPROFEN [Concomitant]
  4. EFFEXOR [Suspect]
     Dosage: ORAL
     Route: 048
     Dates: start: 19980101

REACTIONS (3)
  - BIPOLAR DISORDER [None]
  - DRUG WITHDRAWAL SYNDROME [None]
  - PSYCHOTIC DISORDER [None]
